FAERS Safety Report 5812748-2 (Version None)
Quarter: 2008Q3

REPORT INFORMATION
  Report Type: 
  Country: None (occurrence: None)
  Receive Date: 20080714
  Receipt Date: 20080714
  Transmission Date: 20090109
  Serious: Yes (Hospitalization)
  Sender: FDA-Public Use
  Company Number: None

PATIENT
  Sex: Male
  Weight: 78 kg

DRUGS (4)
  1. INTRON A [Suspect]
     Dosage: 81 MILLION IU
     Dates: end: 20080622
  2. CITALOPRAM HYDROBROMIDE [Concomitant]
  3. DILETIA XT [Concomitant]
  4. LISINOPRIL [Concomitant]

REACTIONS (8)
  - ABDOMINAL PAIN [None]
  - DEHYDRATION [None]
  - DIARRHOEA [None]
  - DISORIENTATION [None]
  - FAECALOMA [None]
  - HYPONATRAEMIA [None]
  - RENAL FAILURE ACUTE [None]
  - URINARY TRACT INFECTION [None]
